FAERS Safety Report 19163745 (Version 1)
Quarter: 2021Q2

REPORT INFORMATION
  Report Type: Spontaneous
  Country: DE (occurrence: DE)
  Receive Date: 20210421
  Receipt Date: 20210421
  Transmission Date: 20210717
  Serious: Yes (Death, Other)
  Sender: FDA-Public Use
  Company Number: DE-SA-2021SA121843

PATIENT
  Age: 80 Year
  Sex: Male
  Weight: 95 kg

DRUGS (7)
  1. FOSFOMYCIN [Concomitant]
     Active Substance: FOSFOMYCIN
  2. DOBUTAMINE [Concomitant]
     Active Substance: DOBUTAMINE HYDROCHLORIDE
  3. PANTOPRAZOLE [Concomitant]
     Active Substance: PANTOPRAZOLE
  4. ARTERENOL [Concomitant]
     Active Substance: NOREPINEPHRINE HYDROCHLORIDE, (+/-)-
  5. JONOSTERIL [CALCIUM CHLORIDE DIHYDRATE;POTASSIUM CHLORIDE;SODIUM LACTA [Concomitant]
  6. CABLIVI [Suspect]
     Active Substance: CAPLACIZUMAB-YHDP
     Indication: THROMBOTIC THROMBOCYTOPENIC PURPURA
     Dosage: 10 MG, QD
     Route: 042
     Dates: start: 202103, end: 20210304
  7. MEROPENEM. [Concomitant]
     Active Substance: MEROPENEM

REACTIONS (4)
  - Cardiac aneurysm [Fatal]
  - Thrombosis [Fatal]
  - Candida sepsis [Fatal]
  - Pneumococcal sepsis [Fatal]
